FAERS Safety Report 11788984 (Version 2)
Quarter: 2017Q1

REPORT INFORMATION
  Report Type: Report from Study
  Country: US (occurrence: US)
  Receive Date: 20151201
  Receipt Date: 20170330
  Transmission Date: 20170428
  Serious: Yes (Hospitalization, Other)
  Sender: FDA-Public Use
  Company Number: PHEH2015US024934

PATIENT
  Sex: Female

DRUGS (3)
  1. GILENYA [Suspect]
     Active Substance: FINGOLIMOD HYDROCHLORIDE
     Indication: MULTIPLE SCLEROSIS
     Dosage: 0.5 MG, QD
     Route: 048
  2. SYNTHROID [Concomitant]
     Active Substance: LEVOTHYROXINE SODIUM
     Indication: PRODUCT USED FOR UNKNOWN INDICATION
     Route: 065
  3. DIAZEPAM. [Concomitant]
     Active Substance: DIAZEPAM
     Indication: MYALGIA
     Route: 065

REACTIONS (8)
  - Ovarian cyst [Recovering/Resolving]
  - Feeling abnormal [Unknown]
  - Ovarian cyst ruptured [Recovering/Resolving]
  - Kidney infection [Unknown]
  - Urinary tract infection [Recovering/Resolving]
  - Nephrolithiasis [Recovering/Resolving]
  - Thyroid disorder [Unknown]
  - Nerve injury [Unknown]
